FAERS Safety Report 5330073-3 (Version None)
Quarter: 2007Q2

REPORT INFORMATION
  Report Type: 
  Country: None (occurrence: None)
  Receive Date: 20070521
  Receipt Date: 20070511
  Transmission Date: 20071010
  Serious: Yes (Hospitalization)
  Sender: FDA-Public Use
  Company Number: FR-ROCHE-497141

PATIENT
  Age: 65 Year
  Sex: Male

DRUGS (9)
  1. CAPECITABINE [Suspect]
     Indication: METASTATIC GASTRIC CANCER
     Dosage: FROM D2 TO D15
     Route: 048
  2. EPIRUBICIN [Suspect]
     Indication: METASTATIC GASTRIC CANCER
     Route: 042
  3. CISPLATIN [Suspect]
     Indication: METASTATIC GASTRIC CANCER
     Route: 042
  4. DUPHALAC [Concomitant]
  5. BICARBONATE [Concomitant]
  6. PLASMA-LYTE 56 AND DEXTROSE 5% IN PLASTIC CONTAINER [Concomitant]
  7. CLAVENTIN [Concomitant]
  8. TAVANIC [Concomitant]
  9. AMFOTERICIN B [Concomitant]

REACTIONS (1)
  - GENERAL PHYSICAL HEALTH DETERIORATION [None]
